FAERS Safety Report 9468153 (Version 1)
Quarter: 2013Q3

REPORT INFORMATION
  Report Type: Report from Study
  Country: US (occurrence: US)
  Receive Date: 20130821
  Receipt Date: 20130821
  Transmission Date: 20140515
  Serious: Yes (Other)
  Sender: FDA-Public Use
  Company Number: US-PFIZER INC-2013234532

PATIENT
  Age: 71 Year
  Sex: Male

DRUGS (2)
  1. PF-04449913 [Suspect]
     Indication: ACUTE MYELOID LEUKAEMIA
     Dosage: 100 MG, ONCE DAILY CONTINUOUS
     Route: 048
     Dates: start: 20130731
  2. CYTARABINE [Suspect]
     Indication: ACUTE MYELOID LEUKAEMIA
     Dosage: 20 MG, 2X/DAY
     Route: 058
     Dates: start: 20130731, end: 20130809

REACTIONS (1)
  - Impaired gastric emptying [Recovered/Resolved]
